FAERS Safety Report 21977204 (Version 1)
Quarter: 2023Q1

REPORT INFORMATION
  Report Type: Spontaneous
  Country: FR (occurrence: None)
  Receive Date: 20230210
  Receipt Date: 20230210
  Transmission Date: 20230418
  Serious: Yes (Hospitalization, Other)
  Sender: FDA-Public Use
  Company Number: 2023A029502

PATIENT
  Age: 28608 Day
  Sex: Male

DRUGS (1)
  1. DAPAGLIFLOZIN [Suspect]
     Active Substance: DAPAGLIFLOZIN
     Indication: Left ventricular failure
     Dosage: UNKNOWN
     Route: 048
     Dates: start: 20220121

REACTIONS (17)
  - Fournier^s gangrene [Unknown]
  - Hyperleukocytosis [Unknown]
  - Renal failure [Unknown]
  - Fungal infection [Unknown]
  - Proctalgia [Unknown]
  - Anal inflammation [Unknown]
  - Fungal infection [Unknown]
  - C-reactive protein increased [Unknown]
  - Candida infection [Unknown]
  - Musculoskeletal pain [Unknown]
  - Dysuria [Unknown]
  - Pyrexia [Unknown]
  - Asthenia [Unknown]
  - Chills [Unknown]
  - Dyspnoea [Unknown]
  - Paronychia [Unknown]
  - Diarrhoea [Unknown]

NARRATIVE: CASE EVENT DATE: 20220331
